FAERS Safety Report 22015662 (Version 5)
Quarter: 2024Q2

REPORT INFORMATION
  Report Type: Report from Study
  Country: EG (occurrence: EG)
  Receive Date: 20230221
  Receipt Date: 20240617
  Transmission Date: 20240716
  Serious: Yes (Other)
  Sender: FDA-Public Use
  Company Number: EG-002147023-NVSC2023EG038613

PATIENT
  Sex: Female

DRUGS (17)
  1. COSENTYX [Suspect]
     Active Substance: SECUKINUMAB
     Indication: Psoriatic arthropathy
     Dosage: 1 DOSAGE FORM, Q2W (1 PREFILLED PEN EVERY 15 DAYS FOR THE FIRST 2 DOSES)
     Route: 058
     Dates: start: 201904
  2. COSENTYX [Suspect]
     Active Substance: SECUKINUMAB
     Indication: Sacroiliitis
     Dosage: 1 DOSAGE FORM, QMO
     Route: 058
     Dates: end: 2021
  3. COSENTYX [Suspect]
     Active Substance: SECUKINUMAB
     Indication: Rheumatic disorder
     Dosage: 1 DOSAGE FORM, QMO (1 PREFILLED PEN)
     Route: 058
     Dates: start: 20220219
  4. COSENTYX [Suspect]
     Active Substance: SECUKINUMAB
     Dosage: UNK
     Route: 058
     Dates: start: 20230219
  5. COSENTYX [Suspect]
     Active Substance: SECUKINUMAB
     Dosage: 1 DOSAGE FORM, QMO (1 PREFILLED MAINTENANCE DOSE)
     Route: 058
  6. LEFLUNOMIDE [Concomitant]
     Active Substance: LEFLUNOMIDE
     Indication: Rheumatic disorder
     Dosage: 1 DOSAGE FORM, DAILY
     Route: 065
     Dates: start: 2019
  7. METHOTREXATE [Concomitant]
     Active Substance: METHOTREXATE
     Indication: Rheumatic disorder
     Dosage: 5 DOSAGE FORM, QW (2 TABLETS AFTER LUNCH AND 3 TABLETS AFTER DINNER EVERY THURSDAY) (STRENGTH: 2.5 (
     Route: 065
     Dates: start: 20230216
  8. CYMBATEX [Concomitant]
     Indication: Insomnia
     Dosage: 1 DOSAGE FORM, QD (EVERY MORNING) (MORE THAN 6 MONTHS) (STRENGTH: 30 (UNSPECIFIED UNITS))
     Route: 065
  9. CYMBATEX [Concomitant]
     Dosage: 1 DOSAGE FORM, QD (30) (EVER MORNING AFTER BREAKFAST)
     Route: 065
  10. MULTIRELAX [Concomitant]
     Indication: Insomnia
     Dosage: UNK (USED FOR LESS THAN A MONTH)
     Route: 065
  11. MULTIRELAX [Concomitant]
     Indication: Muscle relaxant therapy
     Dosage: UNK
     Route: 065
     Dates: start: 20230214
  12. MULTIRELAX [Concomitant]
     Dosage: 5 MG
     Route: 065
     Dates: start: 202301
  13. MULTIRELAX [Concomitant]
     Dosage: 10 MG
     Route: 065
     Dates: start: 20230214
  14. SOLUPRED [Concomitant]
     Indication: Product used for unknown indication
     Dosage: UNK
     Route: 065
  15. OMEGA 3 PLUS [Concomitant]
     Indication: Hypovitaminosis
     Dosage: UNK UNK, PRN ((EVERY NOW AND THEN AS NEEDED BUT ALMOST DAILY FOR THE? LAST 3-4 MONTHS, SOMETIMES ONE
     Route: 065
     Dates: start: 2019
  16. C RETARD [Concomitant]
     Indication: Immune system disorder
     Dosage: 1 DOSAGE FORM, QD
     Route: 065
     Dates: start: 2019
  17. C RETARD [Concomitant]
     Indication: Hypovitaminosis

REACTIONS (24)
  - Nephrolithiasis [Unknown]
  - Psoriatic arthropathy [Recovering/Resolving]
  - Pain [Recovering/Resolving]
  - Alopecia [Not Recovered/Not Resolved]
  - Musculoskeletal stiffness [Unknown]
  - Back pain [Unknown]
  - Arthralgia [Unknown]
  - Hypochromic anaemia [Unknown]
  - Anisocytosis [Unknown]
  - Pain in extremity [Unknown]
  - Limb discomfort [Unknown]
  - Gait disturbance [Recovering/Resolving]
  - Pelvic pain [Recovering/Resolving]
  - Bone erosion [Recovering/Resolving]
  - Hypokinesia [Recovering/Resolving]
  - Sacroiliac joint dysfunction [Unknown]
  - Hypoaesthesia [Recovering/Resolving]
  - Inflammation [Recovered/Resolved]
  - Mental disorder [Recovering/Resolving]
  - Eye inflammation [Recovered/Resolved]
  - Stomatitis [Recovered/Resolved]
  - Product use in unapproved indication [Unknown]
  - Inappropriate schedule of product administration [Unknown]
  - Drug ineffective [Unknown]

NARRATIVE: CASE EVENT DATE: 20190101
